FAERS Safety Report 4575289-9 (Version None)
Quarter: 2005Q1

REPORT INFORMATION
  Report Type: 
  Country: None (occurrence: None)
  Receive Date: 20050127
  Receipt Date: 20050127
  Transmission Date: 20050727
  Serious: Yes (Other)
  Sender: FDA-Public Use
  Company Number: None

PATIENT
  Age: 59 Year
  Sex: Female

DRUGS (9)
  1. PAXIL [Suspect]
     Indication: DYSTHYMIC DISORDER
     Dosage: 40 MG PO QAM
     Route: 048
     Dates: start: 20040301, end: 20041101
  2. DALMANE [Concomitant]
  3. ZANTAC [Concomitant]
  4. SYNTHROID [Concomitant]
  5. FLEXERAL [Concomitant]
  6. OXYCONTIN [Concomitant]
  7. CYTOMEL [Concomitant]
  8. VITAMINS + SUPPLEMENT [Concomitant]
  9. ASHMA INHALERS [Concomitant]

REACTIONS (1)
  - DRUG WITHDRAWAL SYNDROME [None]
